FAERS Safety Report 9517933 (Version 1)
Quarter: 2013Q3

REPORT INFORMATION
  Report Type: Spontaneous
  Country: US (occurrence: None)
  Receive Date: 20130910
  Receipt Date: 20130910
  Transmission Date: 20140515
  Serious: Yes (Hospitalization)
  Sender: FDA-Public Use
  Company Number: None

PATIENT
  Age: 71 Year
  Sex: Female
  Weight: 78.93 kg

DRUGS (1)
  1. APRISO 0.375MG [Suspect]
     Indication: COLITIS ULCERATIVE
     Dosage: 4 PILLS, ONCE DAILY
     Route: 048
     Dates: start: 20130109, end: 20130415

REACTIONS (3)
  - Blood pressure increased [None]
  - Blood pressure fluctuation [None]
  - Transient ischaemic attack [None]
